FAERS Safety Report 5397548-2 (Version None)
Quarter: 2007Q3

REPORT INFORMATION
  Report Type: 
  Country: None (occurrence: None)
  Receive Date: 20070724
  Receipt Date: 20070724
  Transmission Date: 20080115
  Serious: Yes (Other)
  Sender: FDA-Public Use
  Company Number: None

PATIENT
  Sex: Male

DRUGS (1)
  1. DAYTRANA [Suspect]
     Indication: ATTENTION DEFICIT/HYPERACTIVITY DISORDER
     Dosage: 10 MG DAILY TRANSDERMAL
     Route: 062
     Dates: start: 20070518, end: 20070716

REACTIONS (6)
  - ABNORMAL BEHAVIOUR [None]
  - CRYING [None]
  - FEAR [None]
  - HALLUCINATION, VISUAL [None]
  - ONYCHOPHAGIA [None]
  - SKIN HAEMORRHAGE [None]
